FAERS Safety Report 18134434 (Version 4)
Quarter: 2022Q1

REPORT INFORMATION
  Report Type: Spontaneous
  Country: US (occurrence: US)
  Receive Date: 20200811
  Receipt Date: 20220223
  Transmission Date: 20220423
  Serious: No
  Sender: FDA-Public Use
  Company Number: US-PFIZER INC-2020304509

PATIENT
  Age: 52 Year
  Sex: Female

DRUGS (5)
  1. IBRANCE [Suspect]
     Active Substance: PALBOCICLIB
     Indication: Breast cancer female
     Dosage: 100 MG, CYCLIC [QD(ONCE A DAY) X 21 DAYS]
     Dates: start: 20190307
  2. IBRANCE [Suspect]
     Active Substance: PALBOCICLIB
     Indication: Hormone receptor positive HER2 negative breast cancer
     Dosage: 100 MG
     Dates: start: 20220105
  3. IBRANCE [Suspect]
     Active Substance: PALBOCICLIB
     Dosage: 125 MG
     Dates: start: 201809
  4. FASLODEX [Suspect]
     Active Substance: FULVESTRANT
     Dosage: UNK
     Dates: start: 201809
  5. LETROZOLE [Suspect]
     Active Substance: LETROZOLE
     Indication: Breast cancer female
     Dosage: 2.5 MG, CYCLIC (2.5 MG DAILY FOR A 28 DAY CYCLE)

REACTIONS (6)
  - Dyspnoea [Not Recovered/Not Resolved]
  - Infection [Recovered/Resolved]
  - Drug intolerance [Recovered/Resolved]
  - Full blood count abnormal [Recovered/Resolved]
  - Blood pressure abnormal [Recovered/Resolved]
  - Hot flush [Recovered/Resolved]
